FAERS Safety Report 7598344-8 (Version None)
Quarter: 2011Q3

REPORT INFORMATION
  Report Type: 
  Country: None (occurrence: None)
  Receive Date: 20110708
  Receipt Date: 20110628
  Transmission Date: 20111222
  Serious: Yes (Hospitalization)
  Sender: FDA-Public Use
  Company Number: PHHY2011US04885

PATIENT
  Sex: Female

DRUGS (3)
  1. MYFORTIC [Suspect]
     Indication: RENAL TRANSPLANT
     Dosage: 340 MG, BID
     Route: 048
     Dates: start: 20070101
  2. MYFORTIC [Suspect]
     Dosage: 360 MG, BID
     Route: 048
     Dates: start: 20110614
  3. DILANTIN [Suspect]
     Dosage: UNK UKN, UNK

REACTIONS (8)
  - SOMNOLENCE [None]
  - DYSSTASIA [None]
  - OVERDOSE [None]
  - PAIN [None]
  - VOMITING [None]
  - MALAISE [None]
  - FALL [None]
  - WRIST FRACTURE [None]
